FAERS Safety Report 8605380-9 (Version None)
Quarter: 2012Q3

REPORT INFORMATION
  Report Type: 
  Country: None (occurrence: None)
  Receive Date: 20120820
  Receipt Date: 20120815
  Transmission Date: 20120928
  Serious: Yes (Other)
  Sender: FDA-Public Use
  Company Number: US-BAYER-2012-083700

PATIENT
  Age: 17 Year
  Sex: Female

DRUGS (1)
  1. ASPIRIN [Suspect]
     Dosage: 12.5 G, UNK
     Route: 048

REACTIONS (1)
  - FANCONI SYNDROME ACQUIRED [None]
